FAERS Safety Report 4788576-6 (Version None)
Quarter: 2005Q4

REPORT INFORMATION
  Report Type: 
  Country: None (occurrence: None)
  Receive Date: 20051005
  Receipt Date: 20050614
  Transmission Date: 20060501
  Serious: Yes (Life-Threatening, Hospitalization, Disabling)
  Sender: FDA-Public Use
  Company Number: DE-MERCK-0506DEU00129

PATIENT
  Age: 78 Year
  Sex: Female

DRUGS (20)
  1. VIOXX [Suspect]
     Indication: OSTEOARTHRITIS
     Route: 048
     Dates: start: 20000101, end: 20041001
  2. VIOXX [Suspect]
     Indication: POLYARTHRITIS
     Route: 048
     Dates: start: 20000101, end: 20041001
  3. ASPIRIN [Concomitant]
     Route: 065
  4. PHENPROCOUMON [Concomitant]
     Route: 065
  5. CLOPIDOGREL BISULFATE [Concomitant]
     Route: 065
  6. NEBIVOLOL HYDROCHLORIDE [Concomitant]
     Route: 065
  7. RAMIPRIL [Concomitant]
     Route: 065
  8. ACETYLDIGOXIN [Concomitant]
     Route: 065
  9. TORSEMIDE [Concomitant]
     Route: 065
  10. PRAVASTATIN SODIUM [Concomitant]
     Route: 065
  11. AMITRIPTYLINE HYDROCHLORIDE [Concomitant]
     Route: 065
  12. TILIDINE HYDROCHLORIDE [Concomitant]
     Route: 065
  13. FLUPIRTINE MALEATE [Concomitant]
     Route: 065
  14. DICLOFENAC SODIUM [Concomitant]
     Route: 065
  15. PANTOPRAZOLE SODIUM [Concomitant]
     Route: 065
  16. ZOLPIDEM TARTRATE [Concomitant]
     Route: 065
  17. BROMAZEPAM [Concomitant]
     Route: 065
  18. FLUNITRAZEPAM [Concomitant]
     Route: 065
  19. OXAZEPAM [Concomitant]
     Route: 065
  20. LEVOTHYROXINE SODIUM [Concomitant]
     Indication: HYPOTHYROIDISM
     Route: 065
     Dates: end: 20000401

REACTIONS (24)
  - ANGINA PECTORIS [None]
  - AORTIC VALVE INCOMPETENCE [None]
  - CARDIAC FAILURE [None]
  - CHEST DISCOMFORT [None]
  - CHOLESTASIS [None]
  - CORONARY ARTERY DISEASE [None]
  - DIZZINESS [None]
  - DYSPNOEA EXERTIONAL [None]
  - FATIGUE [None]
  - GAIT DISTURBANCE [None]
  - GASTROINTESTINAL INFECTION [None]
  - INTERVERTEBRAL DISC PROTRUSION [None]
  - JOINT SWELLING [None]
  - MITRAL VALVE INCOMPETENCE [None]
  - OEDEMA PERIPHERAL [None]
  - POLYNEUROPATHY [None]
  - RADICULAR SYNDROME [None]
  - ROSACEA [None]
  - SICCA SYNDROME [None]
  - SLEEP DISORDER [None]
  - SOFT TISSUE DISORDER [None]
  - TACHYARRHYTHMIA [None]
  - TARSAL TUNNEL SYNDROME [None]
  - VITAL CAPACITY DECREASED [None]
